FAERS Safety Report 6637747-2 (Version None)
Quarter: 2010Q1

REPORT INFORMATION
  Report Type: 
  Country: None (occurrence: None)
  Receive Date: 20100317
  Receipt Date: 20100309
  Transmission Date: 20100710
  Serious: Yes (Death, Hospitalization, Other)
  Sender: FDA-Public Use
  Company Number: FR-BRISTOL-MYERS SQUIBB COMPANY-15011141

PATIENT
  Age: 88 Year
  Sex: Male

DRUGS (10)
  1. IRBESARTAN [Interacting]
     Indication: HYPERTENSION
     Dosage: DOSE INCREASED TO 150MG/D
     Route: 048
  2. CORDARONE [Interacting]
     Indication: ATRIAL FIBRILLATION
     Dosage: 1 DF = 2 SCORED TABS STRENGTH = 200MG
     Route: 048
     Dates: start: 20090630, end: 20090826
  3. DIGOXIN [Suspect]
     Indication: ATRIAL FIBRILLATION
     Dosage: 1 DF = 1 TABLET STRENGTH = 0.125MG
     Route: 048
     Dates: start: 20090630, end: 20090810
  4. GLYBURIDE [Suspect]
     Indication: DIABETES MELLITUS
     Dosage: 1 DF = 3 SCORED TABS STRENGTH = 5MG
     Route: 048
     Dates: end: 20090810
  5. KARDEGIC [Concomitant]
     Indication: ATRIAL FIBRILLATION
     Dosage: 1 SACHET POWDER
     Route: 048
  6. ALLOPURINOL [Concomitant]
     Indication: GLAUCOMA
     Dosage: TAB
     Route: 048
  7. TADENAN [Concomitant]
     Indication: PROSTATIC ADENOMA
     Dosage: 2 SOFT CAPSULES
     Route: 048
  8. TRAVATAN [Concomitant]
     Indication: GLAUCOMA
     Dosage: 1DF-40 MICROGRAM/ML 1 EYE DROP IN SOLUTION
     Route: 047
  9. HAVLANE [Concomitant]
     Indication: INSOMNIA
     Dosage: 1DF-HALF SCORED TABS
     Route: 048
  10. LANTUS [Concomitant]
     Indication: DIABETES MELLITUS
     Dosage: INCREASED TO 18 IU IN THE EVENING
     Route: 058

REACTIONS (5)
  - DRUG INTERACTION [None]
  - DYSPHONIA [None]
  - GENERAL PHYSICAL HEALTH DETERIORATION [None]
  - MYALGIA [None]
  - TREMOR [None]
